FAERS Safety Report 4981051-5 (Version None)
Quarter: 2006Q2

REPORT INFORMATION
  Report Type: 
  Country: None (occurrence: None)
  Receive Date: 20060424
  Receipt Date: 20060214
  Transmission Date: 20061013
  Serious: Yes (Other)
  Sender: FDA-Public Use
  Company Number: 2006AP00720

PATIENT
  Age: 882 Month
  Sex: Male
  Weight: 75 kg

DRUGS (7)
  1. PROPOFOL [Suspect]
     Indication: SEDATION
     Dates: start: 20050201
  2. PROPOFOL [Suspect]
     Dates: start: 20050501
  3. PROPOFOL [Suspect]
     Dates: start: 20051001
  4. PROPOFOL [Suspect]
     Dates: start: 20060201
  5. PROPOFOL [Suspect]
     Route: 042
     Dates: start: 20060329, end: 20060329
  6. MIDAZOLAM HCL [Concomitant]
     Indication: SEDATION
     Dates: start: 20050201
  7. FENTANYL [Concomitant]
     Indication: SEDATION
     Dates: start: 20050201

REACTIONS (3)
  - ANAESTHETIC COMPLICATION [None]
  - DRUG ERUPTION [None]
  - OEDEMA GENITAL [None]
